FAERS Safety Report 13579660 (Version 1)
Quarter: 2017Q2

REPORT INFORMATION
  Report Type: Report from Study
  Country: CO (occurrence: CO)
  Receive Date: 20170525
  Receipt Date: 20170525
  Transmission Date: 20170830
  Serious: Yes (Other)
  Sender: FDA-Public Use
  Company Number: CO-ELI_LILLY_AND_COMPANY-CO201705008750

PATIENT
  Age: 83 Year
  Sex: Male

DRUGS (1)
  1. CETUXIMAB. [Suspect]
     Active Substance: CETUXIMAB
     Indication: HEAD AND NECK CANCER
     Dosage: UNK, ONCE IN FIFTEEN DAYS
     Route: 042
     Dates: start: 20170328

REACTIONS (5)
  - Immunosuppression [Unknown]
  - Dysphagia [Unknown]
  - Dehydration [Unknown]
  - Off label use [Unknown]
  - Radiation mucositis [Unknown]
